FAERS Safety Report 6933143-9 (Version None)
Quarter: 2010Q3

REPORT INFORMATION
  Report Type: 
  Country: None (occurrence: None)
  Receive Date: 20100820
  Receipt Date: 20100816
  Transmission Date: 20110219
  Serious: Yes (Other)
  Sender: FDA-Public Use
  Company Number: US-ASTRAZENECA-2007UW18303

PATIENT
  Age: 38 Year
  Sex: Male
  Weight: 127 kg

DRUGS (49)
  1. SEROQUEL [Suspect]
     Indication: BIPOLAR DISORDER
     Route: 048
     Dates: start: 19980101, end: 19990101
  2. SEROQUEL [Suspect]
     Indication: DEPRESSION
     Route: 048
     Dates: start: 19980101, end: 19990101
  3. SEROQUEL [Suspect]
     Indication: SCHIZOPHRENIA
     Route: 048
     Dates: start: 19980101, end: 19990101
  4. SEROQUEL [Suspect]
     Indication: SCHIZOAFFECTIVE DISORDER
     Route: 048
     Dates: start: 19980101, end: 19990101
  5. SEROQUEL [Suspect]
     Dosage: 50 MG-1400 MG DAILY
     Route: 048
     Dates: start: 20000727
  6. SEROQUEL [Suspect]
     Dosage: 50 MG-1400 MG DAILY
     Route: 048
     Dates: start: 20000727
  7. SEROQUEL [Suspect]
     Dosage: 50 MG-1400 MG DAILY
     Route: 048
     Dates: start: 20000727
  8. SEROQUEL [Suspect]
     Dosage: 50 MG-1400 MG DAILY
     Route: 048
     Dates: start: 20000727
  9. SEROQUEL [Suspect]
     Route: 048
     Dates: start: 19990101, end: 20010604
  10. SEROQUEL [Suspect]
     Route: 048
     Dates: start: 19990101, end: 20010604
  11. SEROQUEL [Suspect]
     Route: 048
     Dates: start: 19990101, end: 20010604
  12. SEROQUEL [Suspect]
     Route: 048
     Dates: start: 19990101, end: 20010604
  13. ZYPREXA [Suspect]
     Indication: BIPOLAR DISORDER
     Dates: start: 19980101, end: 19990101
  14. ZYPREXA [Suspect]
     Indication: DEPRESSION
     Dates: start: 19980101, end: 19990101
  15. ZYPREXA [Suspect]
     Indication: SCHIZOPHRENIA
     Dates: start: 19980101, end: 19990101
  16. ZYPREXA [Suspect]
     Indication: SCHIZOAFFECTIVE DISORDER
     Dates: start: 19980101, end: 19990101
  17. ZYPREXA [Suspect]
     Dosage: 5 MG-15 MG DAILY
     Dates: start: 19990317
  18. ZYPREXA [Suspect]
     Dosage: 5 MG-15 MG DAILY
     Dates: start: 19990317
  19. ZYPREXA [Suspect]
     Dosage: 5 MG-15 MG DAILY
     Dates: start: 19990317
  20. ZYPREXA [Suspect]
     Dosage: 5 MG-15 MG DAILY
     Dates: start: 19990317
  21. ZYPREXA [Suspect]
     Dates: start: 20031013, end: 20031201
  22. ZYPREXA [Suspect]
     Dates: start: 20031013, end: 20031201
  23. ZYPREXA [Suspect]
     Dates: start: 20031013, end: 20031201
  24. ZYPREXA [Suspect]
     Dates: start: 20031013, end: 20031201
  25. RISPERDAL [Suspect]
     Indication: BIPOLAR DISORDER
     Dates: start: 20000101, end: 20010101
  26. RISPERDAL [Suspect]
     Indication: DEPRESSION
     Dates: start: 20000101, end: 20010101
  27. RISPERDAL [Suspect]
     Indication: SCHIZOPHRENIA
     Dates: start: 20000101, end: 20010101
  28. RISPERDAL [Suspect]
     Indication: SCHIZOAFFECTIVE DISORDER
     Dates: start: 20000101, end: 20010101
  29. RISPERDAL [Suspect]
     Dosage: 2 MG-6 MG DAILY
     Dates: start: 19960206
  30. RISPERDAL [Suspect]
     Dosage: 2 MG-6 MG DAILY
     Dates: start: 19960206
  31. RISPERDAL [Suspect]
     Dosage: 2 MG-6 MG DAILY
     Dates: start: 19960206
  32. RISPERDAL [Suspect]
     Dosage: 2 MG-6 MG DAILY
     Dates: start: 19960206
  33. RISPERDAL [Suspect]
     Dates: start: 20030304
  34. RISPERDAL [Suspect]
     Dates: start: 20030304
  35. RISPERDAL [Suspect]
     Dates: start: 20030304
  36. RISPERDAL [Suspect]
     Dates: start: 20030304
  37. LITHIUM CARBONATE [Concomitant]
     Indication: AFFECTIVE DISORDER
     Dosage: 300 MG-1800 MG DAILY
     Dates: start: 20011201
  38. DEPAKOTE [Concomitant]
     Dosage: 500 MG-2500 MG
     Dates: start: 19960206
  39. XANAX [Concomitant]
     Dosage: 1.5 MG-3 MG
     Dates: start: 19960206
  40. WELLBUTRIN [Concomitant]
     Indication: DEPRESSION
     Dosage: 100 MG-400 MG DAILY
     Dates: start: 19960206
  41. LEXAPRO [Concomitant]
     Dates: start: 20030813
  42. NEURONTIN [Concomitant]
     Indication: ANXIETY
     Dosage: 300 MG-4400 MG
     Dates: start: 20031201
  43. ABILIFY [Concomitant]
     Indication: PSYCHOTIC DISORDER
     Dosage: 50-300 MG
     Dates: start: 20040408
  44. REMERON [Concomitant]
     Indication: INSOMNIA
     Dosage: 15 MG-45 MG DAILY
     Dates: start: 19960206
  45. IBUPROFEN [Concomitant]
     Dosage: 300 MG-6000 MG DAILY
  46. CLOZARIL [Concomitant]
     Dates: start: 20020101
  47. THORAZINE [Concomitant]
  48. CLONAZEPAM [Concomitant]
  49. LAMICTAL [Concomitant]

REACTIONS (2)
  - NEUROPATHY PERIPHERAL [None]
  - TYPE 2 DIABETES MELLITUS [None]
